FAERS Safety Report 21852876 (Version 1)
Quarter: 2023Q1

REPORT INFORMATION
  Report Type: Spontaneous
  Country: US (occurrence: US)
  Receive Date: 20230112
  Receipt Date: 20230112
  Transmission Date: 20230417
  Serious: No
  Sender: FDA-Public Use
  Company Number: US-TAKEDA-2023TUS002111

PATIENT
  Sex: Female
  Weight: 16 kg

DRUGS (9)
  1. GAMMAGARD LIQUID [Suspect]
     Active Substance: HUMAN IMMUNOGLOBULIN G
     Indication: Immune system disorder
     Dosage: 16 GRAM, QD
     Route: 042
     Dates: start: 20230104
  2. GAMMAGARD LIQUID [Suspect]
     Active Substance: HUMAN IMMUNOGLOBULIN G
     Indication: Opsoclonus myoclonus
     Dosage: 16 GRAM, QD
     Route: 042
     Dates: start: 20230104
  3. GAMMAGARD LIQUID [Suspect]
     Active Substance: HUMAN IMMUNOGLOBULIN G
     Indication: Ataxia
     Dosage: 16 GRAM, QD
     Route: 042
     Dates: start: 20230104
  4. TYLENOL [Concomitant]
     Active Substance: ACETAMINOPHEN
  5. ZOFRAN [Concomitant]
     Active Substance: ONDANSETRON HYDROCHLORIDE
  6. CLONIDINE [Concomitant]
     Active Substance: CLONIDINE
     Indication: Hypotension
  7. KEPPRA [Concomitant]
     Active Substance: LEVETIRACETAM
  8. OMEPRAZOLE [Concomitant]
     Active Substance: OMEPRAZOLE
  9. BENADRYL [Concomitant]
     Active Substance: DIPHENHYDRAMINE HYDROCHLORIDE

REACTIONS (3)
  - Drug intolerance [Unknown]
  - Blood pressure decreased [Unknown]
  - Wrong technique in product usage process [Unknown]
